FAERS Safety Report 23405314 (Version 1)
Quarter: 2024Q1

REPORT INFORMATION
  Report Type: Spontaneous
  Country: US (occurrence: None)
  Receive Date: 20240112
  Receipt Date: 20240112
  Transmission Date: 20240410
  Serious: Yes (Death, Hospitalization)
  Sender: FDA-Public Use
  Company Number: None

PATIENT
  Age: 90 Year
  Sex: Male
  Weight: 85.95 kg

DRUGS (12)
  1. BRUKINSA [Suspect]
     Active Substance: ZANUBRUTINIB
     Indication: Chronic lymphocytic leukaemia
     Dosage: 2 CAPSULES TWICE A DAY ORAL
     Route: 048
     Dates: start: 20231124, end: 20231210
  2. COZAAR [Concomitant]
     Active Substance: LOSARTAN POTASSIUM
  3. AMIODARONE [Concomitant]
     Active Substance: AMIODARONE
  4. NORVASC [Concomitant]
     Active Substance: AMLODIPINE BESYLATE
  5. LIPITOR [Concomitant]
     Active Substance: ATORVASTATIN CALCIUM
  6. XARELTO [Concomitant]
     Active Substance: RIVAROXABAN
  7. SENNA [Concomitant]
     Active Substance: SENNA LEAF\SENNOSIDES\SENNOSIDES A AND B
  8. AMOXICILLIN [Concomitant]
     Active Substance: AMOXICILLIN
  9. VITAMINS [Concomitant]
     Active Substance: VITAMINS
  10. FISH OIL [Concomitant]
  11. FIBER [Concomitant]
  12. VITAMIN B COMPLEX [Concomitant]
     Active Substance: CYANOCOBALAMIN\DEXPANTHENOL\NIACINAMIDE\PYRIDOXINE HYDROCHLORIDE\RIBOFLAVIN 5^-PHOSPHATE SODIUM\THIA

REACTIONS (7)
  - Malaise [None]
  - Dizziness [None]
  - Asthenia [None]
  - Loss of personal independence in daily activities [None]
  - Cerebral haemorrhage [None]
  - Subarachnoid haemorrhage [None]
  - Subdural haemorrhage [None]

NARRATIVE: CASE EVENT DATE: 20231209
